FAERS Safety Report 5673758-1 (Version None)
Quarter: 2008Q1

REPORT INFORMATION
  Report Type: 
  Country: None (occurrence: None)
  Receive Date: 20080319
  Receipt Date: 20080307
  Transmission Date: 20080703
  Serious: Yes (Other)
  Sender: FDA-Public Use
  Company Number: CA-PFIZER INC-2008014890

PATIENT
  Sex: Male
  Weight: 61.2 kg

DRUGS (8)
  1. CHAMPIX [Suspect]
     Indication: SMOKING CESSATION THERAPY
     Route: 048
     Dates: start: 20080206, end: 20080210
  2. ALL OTHER THERAPEUTIC PRODUCTS [Concomitant]
     Indication: HIV INFECTION
  3. CLONAZEPAM [Concomitant]
     Indication: ANXIETY DISORDER
  4. KALETRA [Concomitant]
     Indication: HIV INFECTION
  5. LAMIVUDINE [Concomitant]
     Indication: HIV INFECTION
  6. TENOFOVIR [Concomitant]
     Indication: HIV INFECTION
  7. SEROQUEL [Concomitant]
  8. EFFEXOR [Concomitant]

REACTIONS (9)
  - ANXIETY [None]
  - BACK PAIN [None]
  - CONVULSION [None]
  - FACIAL NEURALGIA [None]
  - MUSCULOSKELETAL PAIN [None]
  - MUSCULOSKELETAL STIFFNESS [None]
  - NECK PAIN [None]
  - NEUROPATHY PERIPHERAL [None]
  - PARAESTHESIA [None]
